FAERS Safety Report 7778332 (Version 3)
Quarter: 2016Q1

REPORT INFORMATION
  Report Type: Spontaneous
  Country: JP (occurrence: JP)
  Receive Date: 20110128
  Receipt Date: 20160119
  Transmission Date: 20160526
  Serious: Yes (Death, Life-Threatening, Hospitalization, Other)
  Sender: FDA-Public Use
  Company Number: JP-PFIZER INC-2011011067

PATIENT
  Age: 81 Year
  Sex: Female

DRUGS (13)
  1. SOLU-MEDROL [Suspect]
     Active Substance: METHYLPREDNISOLONE SODIUM SUCCINATE
     Dosage: 500 MG DAILY
     Dates: start: 20110206, end: 20110209
  2. SOLU-MEDROL [Suspect]
     Active Substance: METHYLPREDNISOLONE SODIUM SUCCINATE
     Indication: INTERSTITIAL LUNG DISEASE
     Dosage: 1000 MG, 1X/DAY
     Route: 042
     Dates: start: 20110112, end: 20110112
  3. AMLODIN [Concomitant]
     Active Substance: AMLODIPINE BESYLATE
     Dosage: 5 MG, 1X/DAY
  4. HEPARIN LOCK FLUSH SOLUTION [Concomitant]
     Dosage: 2 DF, 2X/DAY
     Dates: start: 20110111, end: 20110117
  5. SOLU-MEDROL [Suspect]
     Active Substance: METHYLPREDNISOLONE SODIUM SUCCINATE
     Dosage: 1000MG DAILY
     Route: 042
     Dates: start: 20110203, end: 20110206
  6. HEPARIN LOCK FLUSH SOLUTION [Concomitant]
     Dosage: UNK
     Dates: start: 20110125, end: 20110203
  7. SOLU-MEDROL [Suspect]
     Active Substance: METHYLPREDNISOLONE SODIUM SUCCINATE
     Dosage: 250 MG DAILY
     Dates: start: 20110209
  8. SOLU-MEDROL [Suspect]
     Active Substance: METHYLPREDNISOLONE SODIUM SUCCINATE
     Dosage: 1000MG DAILY
     Route: 042
     Dates: start: 20110114, end: 20110115
  9. ERYTHROCIN [Concomitant]
     Active Substance: ERYTHROMYCIN LACTOBIONATE
     Dosage: 1000 MG, 2X/DAY
     Route: 042
     Dates: start: 20110111
  10. PAXIL [Concomitant]
     Active Substance: PAROXETINE HYDROCHLORIDE
     Dosage: UNK
  11. LASIX [Concomitant]
     Active Substance: FUROSEMIDE
     Dosage: 20 MG, 1X/DAY
  12. UNASYN [Suspect]
     Active Substance: AMPICILLIN SODIUM\SULBACTAM SODIUM
     Dosage: 6 G, 2X/DAY
     Route: 042
     Dates: start: 20110111
  13. EUGLUCON [Concomitant]
     Active Substance: GLYBURIDE
     Dosage: 1.25 MG, 1X/DAY

REACTIONS (5)
  - Urinary tract infection [Unknown]
  - Interstitial lung disease [Fatal]
  - Disseminated intravascular coagulation [Unknown]
  - Platelet count decreased [Recovered/Resolved]
  - Sepsis [Unknown]

NARRATIVE: CASE EVENT DATE: 20110117
